FAERS Safety Report 15459641 (Version 1)
Quarter: 2018Q4

REPORT INFORMATION
  Report Type: Report from Study
  Country: CA (occurrence: CA)
  Receive Date: 20181003
  Receipt Date: 20181003
  Transmission Date: 20190204
  Serious: Yes (Other)
  Sender: FDA-Public Use
  Company Number: CA-GLAXOSMITHKLINE-CA2018GSK172656

PATIENT
  Sex: Female

DRUGS (8)
  1. BREO ELLIPTA [Suspect]
     Active Substance: FLUTICASONE FUROATE\VILANTEROL TRIFENATATE
     Indication: ASTHMA
     Dosage: UNK UNK, QD
     Route: 055
     Dates: start: 20151104
  2. TUDORZA [Suspect]
     Active Substance: ACLIDINIUM BROMIDE
     Indication: PRODUCT USED FOR UNKNOWN INDICATION
     Dosage: UNK
  3. SEEBRI BREEZHALER [Suspect]
     Active Substance: GLYCOPYRROLATE
     Indication: ASTHMA
     Dosage: UNK, QD
  4. PULMICORT TURBUHALER [Suspect]
     Active Substance: BUDESONIDE
     Indication: PRODUCT USED FOR UNKNOWN INDICATION
     Dosage: 1 PUFF(S), BID
     Route: 055
  5. ALVESCO [Suspect]
     Active Substance: CICLESONIDE
     Indication: DYSPHONIA
     Dosage: 2 PUFF(S), BID
     Route: 055
  6. NUCALA [Suspect]
     Active Substance: MEPOLIZUMAB
     Indication: ASTHMA
     Dosage: 100 MG, Z, MONTHLY
     Route: 042
     Dates: start: 20180405
  7. SALBUTAMOL SULPHATE [Suspect]
     Active Substance: ALBUTEROL SULFATE
     Indication: ASTHMA
     Dosage: UNK, PRN
  8. OXEZE [Concomitant]
     Active Substance: FORMOTEROL FUMARATE
     Indication: DYSPHONIA
     Dosage: 2 PUFF(S), BID
     Route: 055

REACTIONS (21)
  - Hypothyroidism [Unknown]
  - Dyspnoea [Not Recovered/Not Resolved]
  - Cough [Recovered/Resolved]
  - Loss of personal independence in daily activities [Unknown]
  - Gait disturbance [Unknown]
  - Anaemia [Unknown]
  - Myalgia [Unknown]
  - Middle insomnia [Unknown]
  - Blood count abnormal [Unknown]
  - Obstructive airways disorder [Unknown]
  - Chest discomfort [Not Recovered/Not Resolved]
  - Pulmonary function test decreased [Unknown]
  - Lower respiratory tract infection [Unknown]
  - Treatment noncompliance [Unknown]
  - Wheezing [Recovered/Resolved]
  - Granulomatosis with polyangiitis [Unknown]
  - Dyspnoea exertional [Not Recovered/Not Resolved]
  - Dysphonia [Recovered/Resolved]
  - Asthma [Unknown]
  - Nasopharyngitis [Unknown]
  - Sputum discoloured [Unknown]
